FAERS Safety Report 4809374-0 (Version None)
Quarter: 2005Q4

REPORT INFORMATION
  Report Type: 
  Country: None (occurrence: None)
  Receive Date: 20051021
  Receipt Date: 20051011
  Transmission Date: 20060501
  Serious: Yes (Hospitalization)
  Sender: FDA-Public Use
  Company Number: S05-USA-04630-01

PATIENT
  Age: 86 Year
  Sex: Female
  Weight: 69.4003 kg

DRUGS (5)
  1. NAMENDA [Suspect]
     Indication: DEMENTIA
     Dosage: 5 MG QD PO
     Route: 048
     Dates: start: 20050303, end: 20050304
  2. ASPIRIN [Concomitant]
  3. DIOVAN HCT [Concomitant]
  4. EFFEXOR [Concomitant]
  5. ARICEPT [Concomitant]

REACTIONS (5)
  - ASTHENIA [None]
  - DIZZINESS [None]
  - DYSPNOEA [None]
  - PALPITATIONS [None]
  - TACHYCARDIA [None]
